FAERS Safety Report 7973403-6 (Version None)
Quarter: 2011Q4

REPORT INFORMATION
  Report Type: 
  Country: None (occurrence: None)
  Receive Date: 20111213
  Receipt Date: 20111005
  Transmission Date: 20120403
  Serious: No
  Sender: FDA-Public Use
  Company Number: US-AMGEN-USASP2011051481

PATIENT
  Age: 56 Year
  Sex: Male

DRUGS (10)
  1. ARANESP [Suspect]
     Indication: ANAEMIA OF MALIGNANT DISEASE
     Dosage: 100 MUG, UNK
     Dates: start: 20110928
  2. DECADRON [Concomitant]
  3. TIGAN [Concomitant]
  4. ETOPOSIDE [Concomitant]
  5. CARBOPLATIN [Concomitant]
  6. NEULASTA [Suspect]
     Indication: CHEMOTHERAPY
     Dates: start: 20110804
  7. GEMZAR [Concomitant]
  8. MAGNESIUM SULFATE [Concomitant]
  9. ZANTAC [Concomitant]
  10. CALCIUM [Concomitant]

REACTIONS (6)
  - SKIN BURNING SENSATION [None]
  - EYELID OEDEMA [None]
  - DRY SKIN [None]
  - DERMATITIS [None]
  - SKIN IRRITATION [None]
  - SKIN EXFOLIATION [None]
